FAERS Safety Report 23944149 (Version 1)
Quarter: 2024Q2

REPORT INFORMATION
  Report Type: Spontaneous
  Country: US (occurrence: US)
  Receive Date: 20240606
  Receipt Date: 20240606
  Transmission Date: 20240716
  Serious: No
  Sender: FDA-Public Use
  Company Number: US-BAUSCHBL-2024BNL026628

PATIENT
  Sex: Male

DRUGS (1)
  1. BRIMONIDINE TARTRATE [Suspect]
     Active Substance: BRIMONIDINE TARTRATE
     Indication: Intraocular pressure decreased
     Dosage: INSTILLED INTO THE RIGHT EYE TWO TIMES DAILY.
     Route: 047
     Dates: end: 20240501

REACTIONS (3)
  - Inappropriate schedule of product administration [Unknown]
  - Patient dissatisfaction with treatment [Unknown]
  - Drug ineffective [Unknown]
